FAERS Safety Report 18812091 (Version 1)
Quarter: 2021Q1

REPORT INFORMATION
  Report Type: Spontaneous
  Country: FR (occurrence: FR)
  Receive Date: 20210129
  Receipt Date: 20210129
  Transmission Date: 20210419
  Serious: Yes (Other)
  Sender: FDA-Public Use
  Company Number: FR-ANIPHARMA-2021-FR-000023

PATIENT
  Age: 57 Year
  Sex: Male
  Weight: 65 kg

DRUGS (4)
  1. CANDESARTAN CILEXETIL. [Suspect]
     Active Substance: CANDESARTAN CILEXETIL
     Indication: HYPERTENSION
     Dosage: 2 MG QD
     Route: 048
     Dates: start: 20201012, end: 20201115
  2. ADVAGRAF [Concomitant]
     Active Substance: TACROLIMUS
     Dosage: UNKNOWN DOSE AND FREQUENCY
     Route: 065
     Dates: start: 201907
  3. PERINDOPRIL [Suspect]
     Active Substance: PERINDOPRIL
     Dosage: 4 MG QD
     Route: 048
     Dates: start: 20200204, end: 20200928
  4. IOMERON [Suspect]
     Active Substance: IOMEPROL
     Dosage: 52 ML UNK / 94 ML UNK
     Route: 042
     Dates: start: 20201118, end: 20201118

REACTIONS (2)
  - Pharyngeal disorder [Unknown]
  - Oedema [Unknown]

NARRATIVE: CASE EVENT DATE: 20201119
